FAERS Safety Report 21080831 (Version 1)
Quarter: 2022Q3

REPORT INFORMATION
  Report Type: Spontaneous
  Country: US (occurrence: US)
  Receive Date: 20220714
  Receipt Date: 20220714
  Transmission Date: 20221026
  Serious: No
  Sender: FDA-Public Use
  Company Number: US-RECKITT BENCKISER HEALTHCARE INT LIMITED-RB-081050-2022

PATIENT
  Sex: Female

DRUGS (4)
  1. MUCINEX [Suspect]
     Active Substance: GUAIFENESIN
     Indication: Nasal congestion
     Dosage: 2 DOSAGE FORM, QD
     Route: 048
     Dates: start: 20220102
  2. MUCINEX [Suspect]
     Active Substance: GUAIFENESIN
     Indication: Nasopharyngitis
  3. MUCINEX FAST-MAX NIGHT TIME COLD AND FLU (ACETAMINOPHEN\DIPHENHYDR\PHE [Suspect]
     Active Substance: ACETAMINOPHEN\DIPHENHYDRAMINE HYDROCHLORIDE\PHENYLEPHRINE HYDROCHLORIDE
     Indication: Nasal congestion
     Dosage: 1 DOSAGE FORM, QD
     Route: 048
     Dates: start: 20220102
  4. MUCINEX FAST-MAX NIGHT TIME COLD AND FLU (ACETAMINOPHEN\DIPHENHYDR\PHE [Suspect]
     Active Substance: ACETAMINOPHEN\DIPHENHYDRAMINE HYDROCHLORIDE\PHENYLEPHRINE HYDROCHLORIDE
     Indication: Nasopharyngitis

REACTIONS (1)
  - Drug ineffective [Not Recovered/Not Resolved]
